FAERS Safety Report 9603104 (Version 1)
Quarter: 2013Q4

REPORT INFORMATION
  Report Type: Spontaneous
  Country: JP (occurrence: JP)
  Receive Date: 20131007
  Receipt Date: 20131007
  Transmission Date: 20140711
  Serious: Yes (Other)
  Sender: FDA-Public Use
  Company Number: JP-VIIV HEALTHCARE LIMITED-B0927580A

PATIENT
  Sex: Female

DRUGS (4)
  1. RETROVIR [Suspect]
     Indication: PROPHYLAXIS AGAINST HIV INFECTION
     Route: 065
  2. EPIVIR [Concomitant]
     Indication: HIV INFECTION
     Route: 048
  3. CRIXIVAN [Concomitant]
     Indication: HIV INFECTION
     Route: 048
  4. RETROVIR [Concomitant]
     Indication: HIV INFECTION
     Route: 048

REACTIONS (2)
  - Caesarean section [Unknown]
  - Exposure during pregnancy [Unknown]
